FAERS Safety Report 8032357-7 (Version None)
Quarter: 2012Q1

REPORT INFORMATION
  Report Type: 
  Country: None (occurrence: None)
  Receive Date: 20120109
  Receipt Date: 20120109
  Transmission Date: 20120608
  Serious: No
  Sender: FDA-Public Use
  Company Number: None

PATIENT
  Sex: Male

DRUGS (1)
  1. VICTRELIS [Suspect]
     Dosage: 200 MG PO  TAKE 4 CAPSULES BY MOUTH EVERY 8 HOURS
     Route: 048

REACTIONS (1)
  - PARAESTHESIA [None]
